FAERS Safety Report 5683841-2 (Version None)
Quarter: 2008Q1

REPORT INFORMATION
  Report Type: 
  Country: None (occurrence: None)
  Receive Date: 20080328
  Receipt Date: 20080319
  Transmission Date: 20080703
  Serious: Yes (Hospitalization, Disabling, Other)
  Sender: FDA-Public Use
  Company Number: CA-NOVOPROD-271990

PATIENT

DRUGS (20)
  1. NIASTASE [Suspect]
     Indication: POSTPARTUM HAEMORRHAGE
     Dosage: 2.4 MG, UNK
     Route: 042
     Dates: start: 20070622
  2. NIASTASE [Suspect]
     Dosage: 4.8 UNK, UNK
     Route: 042
     Dates: start: 20070622
  3. PIPERACILLIN W/TAZOBACTAM [Concomitant]
     Dates: start: 20070622, end: 20070704
  4. MIDAZOLAM HCL [Concomitant]
     Dates: start: 20070622, end: 20070704
  5. HEPARIN LOCK-FLUSH [Concomitant]
     Dates: start: 20070622, end: 20070704
  6. OCULAR LUBRICANT                   /00445101/ [Concomitant]
     Dates: start: 20070622, end: 20070704
  7. HEPARIN [Concomitant]
     Dates: start: 20070622, end: 20070704
  8. RANITIDINE [Concomitant]
     Dates: start: 20070622, end: 20070704
  9. PROPOFOL [Concomitant]
     Dates: start: 20070622, end: 20070704
  10. FENTANYL [Concomitant]
     Dates: start: 20070622, end: 20070704
  11. TETRACAINE [Concomitant]
     Dates: start: 20070622, end: 20070704
  12. DOCUSATE SODIUM [Concomitant]
     Dates: start: 20070622, end: 20070704
  13. ACETAMINOPHEN [Concomitant]
     Dates: start: 20070622, end: 20070704
  14. ACETAMINOPHEN W/ CODEINE [Concomitant]
     Dates: start: 20070622, end: 20070704
  15. DIMENHYDRINATE [Concomitant]
     Dates: start: 20070622, end: 20070704
  16. BISACODYL [Concomitant]
     Dates: start: 20070622, end: 20070704
  17. PHENYTOIN [Concomitant]
     Dates: start: 20070622, end: 20070704
  18. MORPHINE [Concomitant]
     Dates: start: 20070622, end: 20070704
  19. KETOROLAC [Concomitant]
     Dates: start: 20070622, end: 20070704
  20. IBUPROFEN [Concomitant]
     Dates: start: 20070622, end: 20070704

REACTIONS (2)
  - CEREBRAL INFARCTION [None]
  - SUBDURAL HAEMORRHAGE [None]
